FAERS Safety Report 9294958 (Version 5)
Quarter: 2013Q3

REPORT INFORMATION
  Report Type: Spontaneous
  Country: US (occurrence: US)
  Receive Date: 20130517
  Receipt Date: 20130926
  Transmission Date: 20140515
  Serious: Yes (Other)
  Sender: FDA-Public Use
  Company Number: US-AMGEN-USASP2013033567

PATIENT
  Age: 72 Year
  Sex: Female
  Weight: 69.84 kg

DRUGS (6)
  1. PROLIA [Suspect]
     Indication: PRODUCT USED FOR UNKNOWN INDICATION
     Dosage: 60 MG, Q12MO
     Route: 058
     Dates: start: 20120611, end: 20120611
  2. FUROSEMIDE [Concomitant]
     Dosage: UNK
     Route: 065
  3. ALLOPURINOL [Concomitant]
     Dosage: UNK
     Route: 065
  4. LISINOPRIL [Concomitant]
     Dosage: UNK
     Route: 065
  5. DIGOXIN [Concomitant]
     Dosage: UNK
     Route: 065
  6. LEXAPRO [Concomitant]
     Dosage: UNK
     Route: 065

REACTIONS (14)
  - Osteonecrosis of jaw [Not Recovered/Not Resolved]
  - Ear pain [Not Recovered/Not Resolved]
  - Oropharyngeal pain [Unknown]
  - Sinus headache [Unknown]
  - Eating disorder [Unknown]
  - Pain [Not Recovered/Not Resolved]
  - Cough [Unknown]
  - Diarrhoea [Unknown]
  - Influenza like illness [Unknown]
  - Nasopharyngitis [Unknown]
  - Facial pain [Unknown]
  - Pain in extremity [Unknown]
  - Sneezing [Unknown]
  - Insomnia [Not Recovered/Not Resolved]
